FAERS Safety Report 7796690-6 (Version None)
Quarter: 2011Q3

REPORT INFORMATION
  Report Type: 
  Country: None (occurrence: None)
  Receive Date: 20110930
  Receipt Date: 20110919
  Transmission Date: 20111222
  Serious: Yes (Death, Life-Threatening, Hospitalization)
  Sender: FDA-Public Use
  Company Number: TPA2011A00571

PATIENT
  Age: 77 Year
  Sex: Female

DRUGS (10)
  1. LISINOPRIL [Concomitant]
  2. ASPIRIN [Concomitant]
  3. IBUPROFEN [Suspect]
  4. AMLODIPINE [Suspect]
     Dosage: 5 MG, 1 IN 1 D, ORAL
     Route: 048
     Dates: start: 20091209
  5. ZEMPLAR [Concomitant]
  6. ULORIC [Suspect]
     Indication: GOUT
     Dosage: 1/2 TABLET 80 MG QD
     Dates: start: 20091228
  7. LABETALOL HCL [Concomitant]
  8. LIPITOR [Concomitant]
  9. ALLOPURINOL [Suspect]
     Indication: BLOOD URIC ACID INCREASED
     Dosage: 1/2 TABLET 300 MG QD
     Dates: start: 20091123
  10. FUROSEMIDE [Concomitant]

REACTIONS (20)
  - ASPARTATE AMINOTRANSFERASE INCREASED [None]
  - BLOOD BICARBONATE DECREASED [None]
  - RESPIRATORY FAILURE [None]
  - HYPOVOLAEMIA [None]
  - UNRESPONSIVE TO STIMULI [None]
  - THERMAL BURN [None]
  - GENERAL PHYSICAL HEALTH DETERIORATION [None]
  - HYPOTENSION [None]
  - HYPOPHAGIA [None]
  - BLOOD GLUCOSE INCREASED [None]
  - TOXIC EPIDERMAL NECROLYSIS [None]
  - TREATMENT NONCOMPLIANCE [None]
  - BLOOD SODIUM DECREASED [None]
  - HAEMODIALYSIS [None]
  - FLUID INTAKE REDUCED [None]
  - PLATELET COUNT DECREASED [None]
  - HAEMOGLOBIN DECREASED [None]
  - HAEMATOCRIT DECREASED [None]
  - RENAL FAILURE ACUTE [None]
  - STEVENS-JOHNSON SYNDROME [None]
